FAERS Safety Report 5069734-2 (Version None)
Quarter: 2006Q3

REPORT INFORMATION
  Report Type: 
  Country: None (occurrence: None)
  Receive Date: 20060803
  Receipt Date: 20060619
  Transmission Date: 20061208
  Serious: Yes (Death, Other)
  Sender: FDA-Public Use
  Company Number: PHFR2006GB02024

PATIENT
  Age: 62 Year

DRUGS (10)
  1. GLEEVEC [Suspect]
     Indication: GASTROINTESTINAL STROMAL TUMOUR
     Dosage: 800 MG/DAY
     Route: 048
     Dates: start: 20060308, end: 20060606
  2. GLEEVEC [Suspect]
     Dosage: 400MG
     Route: 048
     Dates: start: 20040819, end: 20060307
  3. DEXAMETHASONE TAB [Concomitant]
     Indication: APPETITE DISORDER
     Dosage: 0.5MG AND 1MG ALTERNATE DAYS
     Route: 048
     Dates: end: 20060601
  4. FERROUS SULFATE TAB [Concomitant]
     Indication: ANAEMIA
     Dosage: 200 MG, TID
     Route: 048
  5. LANSOPRAZOLE [Concomitant]
     Indication: GASTROINTESTINAL DISORDER
     Dosage: 30 MG, QD
     Route: 048
  6. FOLIC ACID [Concomitant]
     Dosage: 5 MG, BID
     Route: 048
  7. DARBEPOETIN ALFA [Concomitant]
     Indication: ANAEMIA
     Dosage: 260 MG, QW
     Route: 058
  8. ATORVASTATIN CALCIUM [Concomitant]
     Indication: BLOOD CHOLESTEROL
     Dosage: 20MG NOCTE
     Route: 048
  9. ACETAMINOPHEN [Concomitant]
     Indication: ANALGESIC EFFECT
     Dosage: 1 G, QD
     Route: 048
  10. AUGMENTIN /SCH/ [Concomitant]
     Indication: LOWER RESPIRATORY TRACT INFECTION
     Dosage: UNK, UNK
     Route: 048

REACTIONS (6)
  - ANAEMIA [None]
  - DISEASE PROGRESSION [None]
  - GASTROINTESTINAL HAEMORRHAGE [None]
  - GASTROINTESTINAL STROMAL TUMOUR [None]
  - HAEMOGLOBIN DECREASED [None]
  - VASCULAR OPERATION [None]
